FAERS Safety Report 8969162 (Version 1)
Quarter: 2012Q4

REPORT INFORMATION
  Report Type: 
  Country: US (occurrence: US)
  Receive Date: 20121218
  Receipt Date: 20121218
  Transmission Date: 20130627
  Serious: Yes (Other)
  Sender: FDA-Public Use
  Company Number: US-TEVA-376347USA

PATIENT
  Sex: Male

DRUGS (1)
  1. PROAIR HFA [Suspect]
     Dosage: 2 puffs
     Route: 055

REACTIONS (5)
  - Dyspnoea [Unknown]
  - Pulmonary congestion [Unknown]
  - Intentional drug misuse [Unknown]
  - Drug effect decreased [Unknown]
  - Cough [Unknown]
